FAERS Safety Report 8789825 (Version 1)
Quarter: 2012Q4

REPORT INFORMATION
  Report Type: 
  Country: US (occurrence: US)
  Receive Date: 20120917
  Receipt Date: 20120917
  Transmission Date: 20130627
  Serious: Yes (Hospitalization, Other)
  Sender: FDA-Public Use
  Company Number: US-009507513-1004USA00282

PATIENT

DRUGS (6)
  1. FOSAMAX [Suspect]
     Indication: OSTEOPOROSIS PROPHYLAXIS
     Dosage: 10 mg, UNK
     Route: 048
     Dates: start: 200006, end: 200105
  2. FOSAMAX [Suspect]
     Dosage: 70 mg, QW
     Route: 048
     Dates: start: 20010525, end: 20060609
  3. FOSAMAX [Suspect]
     Dosage: 70 mg, QW
     Route: 048
     Dates: start: 20070214, end: 200711
  4. PREMPRO [Concomitant]
     Dosage: 0.625 mg/2.5mg
     Route: 048
     Dates: start: 1995, end: 2005
  5. PREMPRO [Concomitant]
     Dosage: 0.3mg/1.5 mg
     Dates: start: 20050930, end: 2006
  6. BONIVA [Suspect]
     Indication: OSTEOPOROSIS PROPHYLAXIS
     Dosage: 150 mg, UNK
     Route: 048
     Dates: start: 200605, end: 200701

REACTIONS (37)
  - Femur fracture [Unknown]
  - Femur fracture [Unknown]
  - Bundle branch block right [Unknown]
  - Tumour invasion [Unknown]
  - Renal cell carcinoma [Unknown]
  - Sinus bradycardia [Unknown]
  - Fall [Unknown]
  - Anaemia postoperative [Recovering/Resolving]
  - Sudden hearing loss [Unknown]
  - Deafness neurosensory [Unknown]
  - Pulmonary congestion [Unknown]
  - Pleural effusion [Unknown]
  - Tooth disorder [Unknown]
  - Hyperlipidaemia [Unknown]
  - Low turnover osteopathy [Unknown]
  - Anal fissure [Unknown]
  - Osteopenia [Unknown]
  - Smear cervix abnormal [Unknown]
  - Rib fracture [Unknown]
  - Intervertebral disc degeneration [Unknown]
  - Depression [Unknown]
  - Osteoarthritis [Unknown]
  - Bone disorder [Unknown]
  - Musculoskeletal disorder [Unknown]
  - Osteochondrosis [Unknown]
  - Tendon rupture [Recovering/Resolving]
  - Impaired healing [Recovering/Resolving]
  - Osteoarthritis [Unknown]
  - Osteoporosis [Unknown]
  - Gait disturbance [Unknown]
  - Atrophic vulvovaginitis [Unknown]
  - Hot flush [Unknown]
  - Traumatic fracture [Unknown]
  - Meniere^s disease [Unknown]
  - Vomiting [Unknown]
  - Constipation [Unknown]
  - Blood calcium decreased [Unknown]
